FAERS Safety Report 6599888-8 (Version None)
Quarter: 2010Q1

REPORT INFORMATION
  Report Type: 
  Country: None (occurrence: None)
  Receive Date: 20100217
  Receipt Date: 20100204
  Transmission Date: 20100710
  Serious: Yes (Life-Threatening)
  Sender: FDA-Public Use
  Company Number: 1000003828

PATIENT
  Age: 54 Year
  Sex: Female

DRUGS (2)
  1. CITALOPRAM HYDROBROMIDE [Suspect]
     Dosage: ORAL
     Route: 048
     Dates: end: 20090201
  2. LEVOTHYROX [Concomitant]

REACTIONS (3)
  - BALANCE DISORDER [None]
  - MOTION SICKNESS [None]
  - SUBDURAL HAEMATOMA [None]
